FAERS Safety Report 17294092 (Version 1)
Quarter: 2020Q1

REPORT INFORMATION
  Report Type: Spontaneous
  Country: US (occurrence: US)
  Receive Date: 20200120
  Receipt Date: 20200120
  Transmission Date: 20200409
  Serious: Yes (Hospitalization)
  Sender: FDA-Public Use
  Company Number: None

PATIENT
  Age: 17 Year
  Sex: Male

DRUGS (6)
  1. EPIDIOLEX [Suspect]
     Active Substance: CANNABIDIOL
     Indication: EPILEPSY
     Route: 048
     Dates: start: 20190517
  2. BANZEL [Concomitant]
     Active Substance: RUFINAMIDE
     Dates: start: 20190404
  3. CLOBAZAM. [Concomitant]
     Active Substance: CLOBAZAM
     Dates: start: 20190112
  4. POLYETHYLENE GYLCOL [Concomitant]
     Active Substance: POLYETHYLENE GLYCOLS
     Dates: start: 20190712
  5. FELBAMATE. [Concomitant]
     Active Substance: FELBAMATE
     Dates: start: 20190112
  6. LEVETIRACETAM. [Concomitant]
     Active Substance: LEVETIRACETAM
     Dates: start: 20190424

REACTIONS (1)
  - Epilepsy [None]

NARRATIVE: CASE EVENT DATE: 20200118
